FAERS Safety Report 4824692-8 (Version None)
Quarter: 2005Q4

REPORT INFORMATION
  Report Type: 
  Country: None (occurrence: None)
  Receive Date: 20051012
  Receipt Date: 20050810
  Transmission Date: 20060501
  Serious: No
  Sender: FDA-Public Use
  Company Number: 2005S1000193

PATIENT

DRUGS (1)
  1. CUBICIN [Suspect]
     Indication: SKIN ULCER
     Dosage: 300 MG; Q24H; IV
     Route: 042
     Dates: start: 20050714

REACTIONS (1)
  - DRUG INEFFECTIVE [None]
